FAERS Safety Report 6892801-5 (Version None)
Quarter: 2010Q3

REPORT INFORMATION
  Report Type: 
  Country: None (occurrence: None)
  Receive Date: 20100731
  Receipt Date: 20081103
  Transmission Date: 20110219
  Serious: Yes (Other)
  Sender: FDA-Public Use
  Company Number: US-PFIZER INC-2008081576

PATIENT
  Sex: Male
  Weight: 99.09 kg

DRUGS (7)
  1. CAVERJECT [Suspect]
     Indication: ERECTILE DYSFUNCTION
     Dates: start: 20050101
  2. VIAGRA [Suspect]
     Indication: ERECTILE DYSFUNCTION
  3. CELEBREX [Concomitant]
  4. ZOCOR [Concomitant]
  5. PRILOSEC [Concomitant]
  6. ACETYLSALICYLIC ACID SRT [Concomitant]
  7. VITAMINS [Concomitant]

REACTIONS (2)
  - DRUG INEFFECTIVE [None]
  - ERECTION INCREASED [None]
